FAERS Safety Report 10680239 (Version 3)
Quarter: 2016Q2

REPORT INFORMATION
  Report Type: Spontaneous
  Country: US (occurrence: US)
  Receive Date: 20141229
  Receipt Date: 20160408
  Transmission Date: 20160815
  Serious: Yes (Hospitalization, Other)
  Sender: FDA-Public Use
  Company Number: US-SA-2013SA121600

PATIENT
  Age: 57 Year
  Sex: Male
  Weight: 79 kg

DRUGS (20)
  1. TYLENOL [Concomitant]
     Active Substance: ACETAMINOPHEN
     Route: 048
  2. PLAVIX [Suspect]
     Active Substance: CLOPIDOGREL BISULFATE
     Indication: MYOCARDIAL INFARCTION
     Route: 065
     Dates: start: 20050109
  3. PLAVIX [Suspect]
     Active Substance: CLOPIDOGREL BISULFATE
     Indication: CARDIAC FAILURE
     Route: 065
     Dates: start: 20050109
  4. PLAVIX [Suspect]
     Active Substance: CLOPIDOGREL BISULFATE
     Indication: ACUTE CORONARY SYNDROME
     Route: 065
     Dates: start: 20050109
  5. DULCOLAX NOS [Concomitant]
     Active Substance: BISACODYL OR DOCUSATE SODIUM
     Route: 048
  6. PREVACID [Concomitant]
     Active Substance: LANSOPRAZOLE
     Route: 048
  7. LANTUS [Concomitant]
     Active Substance: INSULIN GLARGINE
     Dosage: DOSE:45 UNIT(S)
     Route: 058
  8. PLAVIX [Suspect]
     Active Substance: CLOPIDOGREL BISULFATE
     Indication: PROPHYLAXIS
     Route: 065
     Dates: start: 20050109
  9. LASIX [Concomitant]
     Active Substance: FUROSEMIDE
     Route: 048
  10. ECOTRIN [Concomitant]
     Active Substance: ASPIRIN
     Route: 048
  11. DOXYCYCLINE. [Concomitant]
     Active Substance: DOXYCYCLINE
     Route: 048
  12. LISINOPRIL. [Concomitant]
     Active Substance: LISINOPRIL
     Route: 048
  13. NIACIN. [Concomitant]
     Active Substance: NIACIN
     Route: 048
  14. PLAVIX [Suspect]
     Active Substance: CLOPIDOGREL BISULFATE
     Indication: STENT PLACEMENT
     Route: 065
     Dates: start: 20050109
  15. COREG [Concomitant]
     Active Substance: CARVEDILOL
     Route: 048
  16. GABAPENTIN. [Concomitant]
     Active Substance: GABAPENTIN
     Route: 048
  17. ASPIRIN. [Suspect]
     Active Substance: ASPIRIN
     Route: 065
     Dates: start: 20050209
  18. ULTRAM [Concomitant]
     Active Substance: TRAMADOL HYDROCHLORIDE
     Route: 048
  19. SUCRALFATE. [Concomitant]
     Active Substance: SUCRALFATE
     Dates: start: 20111019
  20. ACTOS [Concomitant]
     Active Substance: PIOGLITAZONE HYDROCHLORIDE
     Route: 048

REACTIONS (38)
  - Coronary artery disease [Unknown]
  - Eye haemorrhage [Unknown]
  - Ulcer haemorrhage [Unknown]
  - Chest pain [Unknown]
  - Ventricular extrasystoles [Unknown]
  - Dilatation ventricular [Unknown]
  - Cardiac output decreased [Unknown]
  - Hyperhidrosis [Unknown]
  - Arthritis [Unknown]
  - Neuropathy peripheral [Unknown]
  - Gastrointestinal haemorrhage [Unknown]
  - Vascular stent restenosis [Unknown]
  - Tricuspid valve incompetence [Unknown]
  - Asthenia [Unknown]
  - Pulmonary arterial pressure increased [Unknown]
  - Gastrooesophageal reflux disease [Unknown]
  - Nausea [Unknown]
  - Myocardial infarction [Unknown]
  - Dyspnoea [Unknown]
  - Dyspepsia [Unknown]
  - Chronic kidney disease [Unknown]
  - Rectal haemorrhage [Unknown]
  - Acute myocardial infarction [Unknown]
  - Ventricular dysfunction [Unknown]
  - Pulmonary congestion [Unknown]
  - Mitral valve incompetence [Unknown]
  - Hypoaesthesia [Unknown]
  - Interstitial lung disease [Unknown]
  - Peptic ulcer [Unknown]
  - Cardiac failure congestive [Unknown]
  - Ejection fraction decreased [Unknown]
  - Mucosal dryness [Unknown]
  - Cardiomegaly [Unknown]
  - Bradycardia [Unknown]
  - Vomiting [Unknown]
  - Constipation [Unknown]
  - Fall [Recovered/Resolved]
  - Loss of consciousness [Recovered/Resolved]
